FAERS Safety Report 10086568 (Version 1)
Quarter: 2014Q2

REPORT INFORMATION
  Report Type: Spontaneous
  Country: CA (occurrence: CA)
  Receive Date: 20140418
  Receipt Date: 20140418
  Transmission Date: 20141212
  Serious: Yes (Other)
  Sender: FDA-Public Use
  Company Number: CA-PFIZER INC-2014107755

PATIENT
  Sex: Female

DRUGS (3)
  1. ETHINYLESTRADIOL/LEVONORGESTREL [Suspect]
     Indication: CONTRACEPTION
     Dosage: UNK
     Route: 048
  2. AZITHROMYCIN [Interacting]
     Indication: BRONCHITIS
     Dosage: UNK
     Dates: start: 20140301
  3. ACCUTANE [Suspect]
     Dosage: UNK
     Dates: end: 201403

REACTIONS (3)
  - Bronchitis [Unknown]
  - Drug interaction [Unknown]
  - Unintended pregnancy [Unknown]
